FAERS Safety Report 10664209 (Version 2)
Quarter: 2015Q1

REPORT INFORMATION
  Report Type: Report from Study
  Country: US (occurrence: US)
  Receive Date: 20141219
  Receipt Date: 20150101
  Transmission Date: 20150720
  Serious: Yes (Hospitalization)
  Sender: FDA-Public Use
  Company Number: US-BIOGENIDEC-2014BI133794

PATIENT
  Age: 53 Year
  Sex: Male

DRUGS (1)
  1. TYSABRI [Suspect]
     Active Substance: NATALIZUMAB
     Indication: MULTIPLE SCLEROSIS
     Route: 042
     Dates: start: 20110721

REACTIONS (3)
  - Cervical cord compression [Recovered/Resolved]
  - Cervical myelopathy [Recovered/Resolved]
  - Cervical radiculopathy [Recovered/Resolved]

NARRATIVE: CASE EVENT DATE: 201411
